FAERS Safety Report 10466119 (Version 1)
Quarter: 2014Q3

REPORT INFORMATION
  Report Type: Spontaneous
  Country: US (occurrence: None)
  Receive Date: 20140919
  Receipt Date: 20140919
  Transmission Date: 20150326
  Serious: Yes (Other)
  Sender: FDA-Public Use
  Company Number: None

PATIENT
  Age: 64 Year
  Sex: Male
  Weight: 68.49 kg

DRUGS (4)
  1. FLEBOGAMMA DIF [Suspect]
     Active Substance: HUMAN IMMUNOGLOBULIN G
     Indication: DEMYELINATION
     Dosage: 25 GRAMS  DAILY X 5 DAYS  INTRAVENOUS
     Route: 042
     Dates: start: 20140424, end: 20140428
  2. FLEBOGAMMA DIF [Suspect]
     Active Substance: HUMAN IMMUNOGLOBULIN G
     Indication: NEUROPATHY PERIPHERAL
     Dosage: 25 GRAMS  DAILY X 5 DAYS  INTRAVENOUS
     Route: 042
     Dates: start: 20140424, end: 20140428
  3. GABAPENTIN. [Concomitant]
     Active Substance: GABAPENTIN
  4. METHYLPREDNISOLONE [Concomitant]
     Active Substance: METHYLPREDNISOLONE

REACTIONS (1)
  - Back pain [None]

NARRATIVE: CASE EVENT DATE: 20140424
